FAERS Safety Report 9278517 (Version 1)
Quarter: 2013Q2

REPORT INFORMATION
  Report Type: Spontaneous
  Country: US (occurrence: US)
  Receive Date: 20130508
  Receipt Date: 20130508
  Transmission Date: 20140414
  Serious: No
  Sender: FDA-Public Use
  Company Number: US-BAUSCH-BL-2013-000375

PATIENT
  Sex: Female

DRUGS (1)
  1. DORZOLAMIDE HYDROCHLORIDE AND TIMOLOL MALEATE OPHTHALMIC SOLUTION 2%/0 [Suspect]
     Dosage: DROPS
     Route: 047

REACTIONS (3)
  - Rash [Unknown]
  - Eyelid margin crusting [Unknown]
  - Skin exfoliation [Unknown]
